FAERS Safety Report 6072093-X (Version None)
Quarter: 2009Q1

REPORT INFORMATION
  Report Type: 
  Country: None (occurrence: None)
  Receive Date: 20090210
  Receipt Date: 20090206
  Transmission Date: 20090719
  Serious: Yes (Other)
  Sender: FDA-Public Use
  Company Number: A0762141A

PATIENT
  Age: 50 Year
  Sex: Female

DRUGS (5)
  1. ALLI [Suspect]
     Dates: start: 20081206, end: 20081207
  2. VITAMIN D3 [Concomitant]
     Indication: VITAMIN D DEFICIENCY
     Route: 048
  3. VITAMIN B COMPLEX CAP [Concomitant]
     Route: 048
  4. COQ10 [Concomitant]
     Route: 048
  5. MOTRIN [Concomitant]

REACTIONS (7)
  - BLOOD PRESSURE INCREASED [None]
  - HYPERSENSITIVITY [None]
  - MUSCLE TIGHTNESS [None]
  - SWOLLEN TONGUE [None]
  - THROAT TIGHTNESS [None]
  - TONGUE DISCOLOURATION [None]
  - TONGUE DISORDER [None]
